FAERS Safety Report 6461726-1 (Version None)
Quarter: 2009Q4

REPORT INFORMATION
  Report Type: 
  Country: None (occurrence: None)
  Receive Date: 20091130
  Receipt Date: 20091120
  Transmission Date: 20100525
  Serious: Yes (Hospitalization, Disabling)
  Sender: FDA-Public Use
  Company Number: ZA-BRISTOL-MYERS SQUIBB COMPANY-13647581

PATIENT
  Age: 80 Year
  Sex: Male
  Weight: 85 kg

DRUGS (19)
  1. IRBESARTAN [Suspect]
     Indication: HYPERTENSION
     Dates: start: 20031201, end: 20080815
  2. WARFARIN SODIUM [Suspect]
     Indication: PROPHYLAXIS
     Dosage: STOPPED ON UNKNOWN DATE AND RESTARTED ON 16-JAN-2007.
     Dates: start: 20031201
  3. LANOXIN [Concomitant]
  4. CALCIUM ACETATE [Concomitant]
  5. BEZAFIBRATE [Concomitant]
  6. DOBUTREX [Concomitant]
  7. EPREX [Concomitant]
  8. VANCOMYCIN [Concomitant]
  9. TAZOCIN [Concomitant]
  10. OMNOPON [Concomitant]
  11. COVERSYL [Concomitant]
  12. STEMETIL [Concomitant]
  13. MORPHINE [Concomitant]
  14. VOLTAREN [Concomitant]
  15. NEXIUM [Concomitant]
  16. CARLOC [Concomitant]
  17. COLCHICINE [Concomitant]
  18. ROCALTROL [Concomitant]
  19. TORSEMIDE [Concomitant]

REACTIONS (2)
  - INGUINAL HERNIA [None]
  - RETROPERITONEAL HAEMATOMA [None]
